FAERS Safety Report 6313888-4 (Version None)
Quarter: 2009Q3

REPORT INFORMATION
  Report Type: 
  Country: None (occurrence: None)
  Receive Date: 20090817
  Receipt Date: 20090817
  Transmission Date: 20100115
  Serious: Yes (Life-Threatening, Hospitalization)
  Sender: FDA-Public Use
  Company Number: None

PATIENT
  Age: 42 Year
  Sex: Male
  Weight: 86.1834 kg

DRUGS (1)
  1. LUNESTA [Suspect]
     Indication: INSOMNIA
     Dosage: -1- 3 MG TABLET ONCE PER NIGHT PO
     Route: 048
     Dates: start: 20060701, end: 20080813

REACTIONS (8)
  - ANXIETY [None]
  - BLUNTED AFFECT [None]
  - DEPRESSION [None]
  - DRUG WITHDRAWAL SYNDROME [None]
  - IMPAIRED WORK ABILITY [None]
  - MARITAL PROBLEM [None]
  - PANIC DISORDER [None]
  - SUICIDAL IDEATION [None]
